FAERS Safety Report 4508854-5 (Version None)
Quarter: 2004Q4

REPORT INFORMATION
  Report Type: 
  Country: None (occurrence: None)
  Receive Date: 20041123
  Receipt Date: 20040927
  Transmission Date: 20050328
  Serious: No
  Sender: FDA-Public Use
  Company Number: US-GLAXOSMITHKLINE-A0527407A

PATIENT
  Age: 40 Year
  Sex: Female

DRUGS (5)
  1. WELLBUTRIN SR [Suspect]
     Indication: DEPRESSION
     Dosage: 100MG PER DAY
     Route: 048
     Dates: start: 20040701
  2. WELLBUTRIN XL [Suspect]
     Indication: DEPRESSION
     Dosage: 150MG PER DAY
     Route: 048
     Dates: start: 20040926, end: 20040927
  3. SINGULAIR [Concomitant]
  4. ZOLOFT [Concomitant]
  5. SAM-E [Concomitant]

REACTIONS (4)
  - CHEST DISCOMFORT [None]
  - FATIGUE [None]
  - PALPITATIONS [None]
  - PARAESTHESIA [None]
